FAERS Safety Report 12120436 (Version 1)
Quarter: 2016Q1

REPORT INFORMATION
  Report Type: Report from Study
  Country: US (occurrence: US)
  Receive Date: 20160226
  Receipt Date: 20160226
  Transmission Date: 20160526
  Serious: No
  Sender: FDA-Public Use
  Company Number: PHEH2016US004519

PATIENT
  Age: 67 Year
  Sex: Female

DRUGS (2)
  1. TOBI PODHALER [Suspect]
     Active Substance: TOBRAMYCIN
     Dosage: 2 DF, BID
     Route: 055
     Dates: start: 20160126, end: 20160219
  2. TOBI PODHALER [Suspect]
     Active Substance: TOBRAMYCIN
     Indication: BRONCHIECTASIS
     Dosage: 4 DF, BID
     Route: 055
     Dates: start: 20160115, end: 20160119

REACTIONS (4)
  - Product use issue [Unknown]
  - Aphonia [Unknown]
  - Dyspnoea [Unknown]
  - Oesophageal discomfort [Unknown]

NARRATIVE: CASE EVENT DATE: 20160119
